FAERS Safety Report 23963417 (Version 1)
Quarter: 2024Q2

REPORT INFORMATION
  Report Type: Spontaneous
  Country: US (occurrence: None)
  Receive Date: 20240610
  Receipt Date: 20240610
  Transmission Date: 20240716
  Serious: Yes (Other)
  Sender: FDA-Public Use
  Company Number: None

PATIENT
  Age: 54 Year
  Sex: Female
  Weight: 56.25 kg

DRUGS (11)
  1. VALACYCLOVIR [Suspect]
     Active Substance: VALACYCLOVIR HYDROCHLORIDE
     Indication: Herpes virus infection
     Dosage: OTHER QUANTITY : 1 TABLET(S);?FREQUENCY : DAILY;?
     Route: 048
     Dates: start: 20240415, end: 20240517
  2. hydroxyzline [Concomitant]
  3. VITAMINS [Concomitant]
     Active Substance: VITAMINS
  4. b6 complex [Concomitant]
  5. VITAMIN C [Concomitant]
     Active Substance: ASCORBIC ACID
  6. VITAMIN D3 [Concomitant]
     Active Substance: CHOLECALCIFEROL
  7. MAGNESIUM [Concomitant]
     Active Substance: MAGNESIUM
  8. ZINC [Concomitant]
     Active Substance: PYRITHIONE ZINC\ZINC\ZINC CHLORIDE
  9. HOLY BASIL [Concomitant]
  10. cbd tincture [Concomitant]
  11. PROBIOTICS NOS [Concomitant]
     Active Substance: PROBIOTICS NOS

REACTIONS (11)
  - Drug ineffective [None]
  - Emotional disorder [None]
  - Behaviour disorder [None]
  - Thinking abnormal [None]
  - Mania [None]
  - Depression [None]
  - Anxiety [None]
  - Insomnia [None]
  - Hypophagia [None]
  - Obsessive thoughts [None]
  - Therapy cessation [None]

NARRATIVE: CASE EVENT DATE: 20240517
